FAERS Safety Report 23985815 (Version 2)
Quarter: 2024Q2

REPORT INFORMATION
  Report Type: Report from Study
  Country: US (occurrence: US)
  Receive Date: 20240618
  Receipt Date: 20240625
  Transmission Date: 20240716
  Serious: Yes (Hospitalization)
  Sender: FDA-Public Use
  Company Number: US-SEATTLE GENETICS-2024SGN02120

PATIENT
  Age: 52 Year
  Sex: Female

DRUGS (2)
  1. TUKYSA [Suspect]
     Active Substance: TUCATINIB
     Indication: Breast cancer female
     Dosage: 300 MG EVERY MORNING AND 150 MG EVERY EVENING PER MD INSTRUCTIONS
     Dates: start: 20240218
  2. TUKYSA [Suspect]
     Active Substance: TUCATINIB
     Dosage: 300MG EVERY 12 HOURS
     Dates: start: 20240218

REACTIONS (8)
  - Dizziness [Recovered/Resolved]
  - Off label use [Unknown]
  - Arthralgia [Unknown]
  - Dry skin [Unknown]
  - Early satiety [Unknown]
  - Decreased appetite [Unknown]
  - Skin exfoliation [Unknown]
  - Nausea [Unknown]

NARRATIVE: CASE EVENT DATE: 20240601
